FAERS Safety Report 6800733-3 (Version None)
Quarter: 2010Q2

REPORT INFORMATION
  Report Type: 
  Country: None (occurrence: None)
  Receive Date: 20100629
  Receipt Date: 20100623
  Transmission Date: 20101027
  Serious: Yes (Other)
  Sender: FDA-Public Use
  Company Number: FR-BAYER-200937454GPV

PATIENT
  Age: 61 Year
  Sex: Male
  Weight: 81 kg

DRUGS (4)
  1. SORAFENIB [Suspect]
     Indication: HEPATIC NEOPLASM MALIGNANT
     Dosage: TOTAL DAILY DOSE: 800 MG  UNIT DOSE: 200 MG
     Route: 048
     Dates: start: 20090929, end: 20091026
  2. ACID FOLIC [Concomitant]
     Indication: SMALL INTESTINAL OBSTRUCTION
     Route: 048
     Dates: start: 20090929
  3. ESOMEPRAZOLE [Concomitant]
     Indication: GASTROOESOPHAGEAL REFLUX DISEASE
     Route: 048
     Dates: start: 20090929
  4. AVLOCARDYL [Concomitant]
     Indication: HYPERTENSION
     Route: 048
     Dates: start: 20090629

REACTIONS (1)
  - PORTAL VEIN THROMBOSIS [None]
